FAERS Safety Report 22321326 (Version 1)
Quarter: 2023Q2

REPORT INFORMATION
  Report Type: Spontaneous
  Country: ES (occurrence: ES)
  Receive Date: 20230515
  Receipt Date: 20230515
  Transmission Date: 20230722
  Serious: Yes (Other)
  Sender: FDA-Public Use
  Company Number: None

PATIENT
  Age: 60 Year
  Sex: Male

DRUGS (3)
  1. JARDIANCE [Suspect]
     Active Substance: EMPAGLIFLOZIN
     Indication: Diabetes mellitus
     Dosage: 25MG 1-0-0
     Route: 048
     Dates: start: 20200225
  2. ATORVASTATIN [Suspect]
     Active Substance: ATORVASTATIN
     Indication: Dyslipidaemia
     Dosage: 30 MG 0-0-1 13NOV2020 ? CURRENTLY (20 MG FROM 16APR2014)
     Route: 048
     Dates: start: 20160416, end: 20230125
  3. ENALAPRIL [Suspect]
     Active Substance: ENALAPRIL
     Indication: Hypertension
     Dosage: 20 MG 1-0-0 21FEB2017 ?25JAN2023 (5MG FROM 28JUN2012, 10MG FROM 16APR2014)
     Route: 048
     Dates: start: 20140416, end: 20230125

REACTIONS (1)
  - Pancreatitis chronic [Unknown]

NARRATIVE: CASE EVENT DATE: 20221108
